FAERS Safety Report 16464277 (Version 2)
Quarter: 2019Q2

REPORT INFORMATION
  Report Type: Spontaneous
  Country: US (occurrence: US)
  Receive Date: 20190621
  Receipt Date: 20190625
  Transmission Date: 20190711
  Serious: No
  Sender: FDA-Public Use
  Company Number: US-PFIZER INC-2019260726

PATIENT
  Age: 58 Year
  Sex: Male
  Weight: 90.72 kg

DRUGS (5)
  1. FIBERCON [Suspect]
     Active Substance: CALCIUM POLYCARBOPHIL
     Indication: CROHN^S DISEASE
     Dosage: 2 DF, DAILY [TAKES 2 A DAY]
     Dates: start: 2007
  2. IRON [Concomitant]
     Active Substance: IRON
     Indication: SUPPLEMENTATION THERAPY
     Dosage: 625 MG, UNK
     Dates: start: 201806
  3. CENTRUM SILVER ADULTS 50+ [Concomitant]
     Active Substance: MINERALS\VITAMINS
     Indication: SUPPLEMENTATION THERAPY
     Dosage: 1 DF, DAILY (1 A DAY)
  4. FIBERCON [Suspect]
     Active Substance: CALCIUM POLYCARBOPHIL
     Indication: DIARRHOEA
  5. PROBIOTICS [Concomitant]
     Active Substance: PROBIOTICS NOS
     Indication: SUPPLEMENTATION THERAPY
     Dosage: 1 DF, 1X/DAY

REACTIONS (2)
  - Intentional product use issue [Unknown]
  - Therapeutic product effect incomplete [Unknown]

NARRATIVE: CASE EVENT DATE: 2007
